FAERS Safety Report 8857764 (Version 2)
Quarter: 2012Q4

REPORT INFORMATION
  Report Type: 
  Country: US (occurrence: US)
  Receive Date: 20121024
  Receipt Date: 20121112
  Transmission Date: 20130627
  Serious: No
  Sender: FDA-Public Use
  Company Number: US-ASTRAZENECA-2012SE17985

PATIENT
  Age: 67 Year
  Sex: Female

DRUGS (2)
  1. NEXIUM [Suspect]
     Route: 048
  2. CRESTOR [Suspect]
     Route: 048

REACTIONS (11)
  - Pain in extremity [Unknown]
  - Pain in extremity [Unknown]
  - Asthenia [Unknown]
  - Chest pain [Unknown]
  - Chest discomfort [Unknown]
  - Diarrhoea [Unknown]
  - Vomiting [Unknown]
  - Oesophageal stenosis [Unknown]
  - Adverse event [Unknown]
  - Mobility decreased [Unknown]
  - Drug dose omission [Unknown]
